FAERS Safety Report 4602639-7 (Version None)
Quarter: 2005Q1

REPORT INFORMATION
  Report Type: 
  Country: None (occurrence: None)
  Receive Date: 20050307
  Receipt Date: 20050218
  Transmission Date: 20050727
  Serious: Yes (Hospitalization)
  Sender: FDA-Public Use
  Company Number: 2002IM000859

PATIENT
  Age: 64 Year
  Sex: Female
  Weight: 106.1417 kg

DRUGS (15)
  1. INTERFERON  GAMMA-1B [Suspect]
     Indication: OVARIAN CANCER
     Dosage: 100 UG, TIW, SUBCUTANEOUS
     Route: 058
     Dates: start: 20020520, end: 20020712
  2. CARBOPLATIN [Suspect]
     Indication: OVARIAN CANCER
     Dosage: 596 MG, Q3W, INTRAVENOUS
     Route: 042
     Dates: start: 20020520, end: 20020708
  3. PACLITAXEL [Suspect]
     Dosage: 350 MG, Q3W, INTRAVENOUS
     Route: 042
     Dates: start: 20020520, end: 20020708
  4. NORMAL SALINE [Concomitant]
  5. POTASSIUM CHLORIDE [Concomitant]
  6. ATIVAN [Concomitant]
  7. ANZEMET [Concomitant]
  8. DECADRON [Concomitant]
  9. BENADRYL [Concomitant]
  10. ZANTAC [Concomitant]
  11. MANNITOL [Concomitant]
  12. OXYGEN [Concomitant]
  13. COMPAZINE [Concomitant]
  14. IBUPROFEN [Concomitant]
  15. MAGNESIUM OXIDE [Concomitant]

REACTIONS (8)
  - DIARRHOEA [None]
  - DYSPNOEA EXERTIONAL [None]
  - FEBRILE NEUTROPENIA [None]
  - HAEMOTHORAX [None]
  - HYPOKALAEMIA [None]
  - HYPOMAGNESAEMIA [None]
  - PLEURAL EFFUSION [None]
  - TACHYCARDIA [None]
